FAERS Safety Report 10014520 (Version 1)
Quarter: 2014Q1

REPORT INFORMATION
  Report Type: Spontaneous
  Country: US (occurrence: US)
  Receive Date: 20140317
  Receipt Date: 20140317
  Transmission Date: 20141002
  Serious: Yes (Other)
  Sender: FDA-Public Use
  Company Number: US-MALLINCKRODT-T201401544

PATIENT
  Age: 37 Year
  Sex: Male

DRUGS (1)
  1. ROXICODONE [Suspect]
     Indication: PRODUCT USED FOR UNKNOWN INDICATION
     Dosage: UNK
     Route: 045

REACTIONS (4)
  - Drug abuse [Unknown]
  - Nasal necrosis [Unknown]
  - Stomatitis necrotising [Unknown]
  - Paranasal sinus necrosis [Unknown]
